FAERS Safety Report 10605624 (Version 1)
Quarter: 2014Q4

REPORT INFORMATION
  Report Type: Spontaneous
  Country: US (occurrence: US)
  Receive Date: 20141125
  Receipt Date: 20141125
  Transmission Date: 20150529
  Serious: Yes (Other)
  Sender: FDA-Public Use
  Company Number: US-AUROBINDO-AUR-APL-2014-12361

PATIENT
  Age: 67 Year
  Sex: Female
  Weight: 59 kg

DRUGS (4)
  1. GABAPENTIN AMNEAL [Suspect]
     Active Substance: GABAPENTIN
     Indication: HAEMORRHAGIC STROKE
     Dosage: 700 MG, FOUR TIMES/DAY
     Route: 065
  2. GABAPENTIN CAPSULES (GABAPENTIN) [Suspect]
     Active Substance: GABAPENTIN
     Indication: HAEMORRHAGIC STROKE
     Dosage: 700 MG, FOUR TIMES/DAY
     Route: 065
     Dates: start: 20141027, end: 20141028
  3. NEURONTIN [Suspect]
     Active Substance: GABAPENTIN
     Dosage: 400 MG, FOUR TIMES/DAY
     Route: 065
  4. NEURONTIN [Suspect]
     Active Substance: GABAPENTIN
     Indication: HAEMORRHAGIC STROKE
     Dosage: 700 MG, FOUR TIMES/DAY
     Route: 065

REACTIONS (11)
  - Seizure [Unknown]
  - Pain [Unknown]
  - Balance disorder [Unknown]
  - Product substitution issue [None]
  - Nausea [Unknown]
  - Feeling abnormal [Unknown]
  - Coordination abnormal [Unknown]
  - Lacrimation increased [Unknown]
  - Burning sensation [Unknown]
  - Speech disorder [Unknown]
  - Product quality issue [None]

NARRATIVE: CASE EVENT DATE: 20141027
